FAERS Safety Report 15285545 (Version 1)
Quarter: 2018Q3

REPORT INFORMATION
  Report Type: Spontaneous
  Country: GB (occurrence: GB)
  Receive Date: 20180816
  Receipt Date: 20180816
  Transmission Date: 20181010
  Serious: Yes (Hospitalization)
  Sender: FDA-Public Use
  Company Number: GB-TEVA-2018-GB-941400

PATIENT
  Age: 79 Year
  Sex: Male

DRUGS (13)
  1. METFORMIN [Concomitant]
     Active Substance: METFORMIN HYDROCHLORIDE
  2. EDOXABAN [Suspect]
     Active Substance: EDOXABAN TOSYLATE
     Indication: ATRIAL FIBRILLATION
     Dosage: 60 MILLIGRAM DAILY;
     Route: 048
     Dates: end: 20180708
  3. FERROUS FUMARATE [Concomitant]
     Active Substance: FERROUS FUMARATE
  4. SALBUTAMOL [Concomitant]
     Active Substance: ALBUTEROL
  5. LOSARTAN POTASSIUM. [Concomitant]
     Active Substance: LOSARTAN POTASSIUM
  6. FOSTAIR [Concomitant]
     Active Substance: BECLOMETHASONE\FORMOTEROL
  7. BISOPROLOL FUMARATE. [Concomitant]
     Active Substance: BISOPROLOL FUMARATE
  8. IBUPROFEN. [Concomitant]
     Active Substance: IBUPROFEN
  9. IBUPROFEN. [Suspect]
     Active Substance: IBUPROFEN
     Indication: PAIN MANAGEMENT
     Dosage: 1200 MILLIGRAM DAILY;
     Route: 048
     Dates: end: 20180708
  10. SIMVASTATIN. [Concomitant]
     Active Substance: SIMVASTATIN
  11. FUROSEMIDE. [Concomitant]
     Active Substance: FUROSEMIDE
  12. DOXAZOSIN MESYLATE. [Concomitant]
     Active Substance: DOXAZOSIN MESYLATE
  13. OMEPRAZOLE. [Concomitant]
     Active Substance: OMEPRAZOLE

REACTIONS (1)
  - Haematuria [Recovering/Resolving]

NARRATIVE: CASE EVENT DATE: 20180704
